FAERS Safety Report 11172349 (Version 4)
Quarter: 2016Q1

REPORT INFORMATION
  Report Type: Spontaneous
  Country: US (occurrence: US)
  Receive Date: 20150608
  Receipt Date: 20160126
  Transmission Date: 20160525
  Serious: Yes (Death, Other)
  Sender: FDA-Public Use
  Company Number: US-PFIZER INC-2015188197

PATIENT
  Age: 75 Year
  Sex: Male
  Weight: 74.84 kg

DRUGS (5)
  1. COREG [Concomitant]
     Active Substance: CARVEDILOL
     Dosage: UNK
  2. AMLODIPINE [Concomitant]
     Active Substance: AMLODIPINE BESYLATE
     Dosage: UNK
  3. SUTENT [Suspect]
     Active Substance: SUNITINIB MALATE
     Indication: METASTATIC RENAL CELL CARCINOMA
     Dosage: 2 WEEKS ON/1 WEEK OFF
     Dates: start: 2013
  4. SUTENT [Suspect]
     Active Substance: SUNITINIB MALATE
     Dosage: 50 MG, DAILY, 7 DAYS ON AND 7 DAYS OFF
     Route: 048
     Dates: start: 20150601
  5. PROMETHAZINE [Concomitant]
     Active Substance: PROMETHAZINE\PROMETHAZINE HYDROCHLORIDE
     Dosage: UNK

REACTIONS (12)
  - Renal failure [Fatal]
  - Multiple organ dysfunction syndrome [Fatal]
  - Nausea [Unknown]
  - Contusion [Unknown]
  - Constipation [Unknown]
  - Metastatic renal cell carcinoma [Unknown]
  - Diarrhoea [Unknown]
  - Fall [Unknown]
  - Anaemia [Unknown]
  - Disease progression [Unknown]
  - Cerebrovascular accident [Unknown]
  - Haematemesis [Unknown]

NARRATIVE: CASE EVENT DATE: 201512
